FAERS Safety Report 9471464 (Version 3)
Quarter: 2013Q3

REPORT INFORMATION
  Report Type: Report from Study
  Country: DE (occurrence: DE)
  Receive Date: 20130822
  Receipt Date: 20130829
  Transmission Date: 20140515
  Serious: Yes (Death, Hospitalization, Other)
  Sender: FDA-Public Use
  Company Number: DE-PFIZER INC-2013228636

PATIENT
  Age: 68 Year
  Sex: Male
  Weight: 58 kg

DRUGS (2)
  1. TORISEL [Suspect]
     Indication: CLEAR CELL RENAL CELL CARCINOMA
     Dosage: 25 MG, WEEKLY
     Dates: start: 20120703, end: 20130305
  2. ZOMETA [Concomitant]
     Dosage: 4 MG, UNK

REACTIONS (3)
  - Disease progression [Fatal]
  - Clear cell renal cell carcinoma [Fatal]
  - Anaemia [Fatal]
